FAERS Safety Report 11603284 (Version 1)
Quarter: 2015Q4

REPORT INFORMATION
  Report Type: Spontaneous
  Country: IT (occurrence: IT)
  Receive Date: 20151006
  Receipt Date: 20151006
  Transmission Date: 20160304
  Serious: Yes (Death, Hospitalization)
  Sender: FDA-Public Use
  Company Number: IT-EXELIXIS-CABO-15005578

PATIENT
  Age: 46 Year
  Sex: Female
  Weight: 40.7 kg

DRUGS (4)
  1. COMETRIQ [Suspect]
     Active Substance: CABOZANTINIB S-MALATE
     Dosage: 60 MG, QOD
     Route: 048
     Dates: start: 20150703, end: 20150821
  2. COMETRIQ [Suspect]
     Active Substance: CABOZANTINIB S-MALATE
     Dosage: 100 MG, QD
     Route: 048
     Dates: start: 20150202, end: 20150316
  3. COMETRIQ [Suspect]
     Active Substance: CABOZANTINIB S-MALATE
     Indication: MEDULLARY THYROID CANCER
     Dosage: 140 MG, QD
     Route: 048
     Dates: start: 20141208, end: 20150201
  4. COMETRIQ [Suspect]
     Active Substance: CABOZANTINIB S-MALATE
     Dosage: 60 MG, QOD
     Dates: start: 20150601, end: 20150701

REACTIONS (4)
  - Epilepsy [Fatal]
  - Asthenia [Unknown]
  - Malignant neoplasm progression [Fatal]
  - Stomatitis [Unknown]

NARRATIVE: CASE EVENT DATE: 20150821
